FAERS Safety Report 9190994 (Version 1)
Quarter: 2013Q1

REPORT INFORMATION
  Report Type: Spontaneous
  Country: DE (occurrence: DE)
  Receive Date: 20130326
  Receipt Date: 20130326
  Transmission Date: 20140127
  Serious: Yes (Other)
  Sender: FDA-Public Use
  Company Number: DE-ELI_LILLY_AND_COMPANY-DE201210004179

PATIENT
  Sex: Male

DRUGS (12)
  1. BYETTA [Suspect]
     Indication: DIABETES MELLITUS
     Dosage: 5 UG, UNK
     Route: 058
     Dates: start: 20121001, end: 20121103
  2. BYETTA [Suspect]
     Dosage: 10 UG, BID
     Dates: start: 20121104
  3. BYETTA [Suspect]
     Dosage: 10 UG, BID
  4. METODURA [Concomitant]
  5. RAMIPRIL [Concomitant]
  6. ASS [Concomitant]
  7. ATACAND [Concomitant]
  8. LEVEMIR [Concomitant]
     Dosage: 30 U, UNK
  9. LEVEMIR [Concomitant]
     Dosage: 18 U, UNK
  10. PANTOPRAZOL [Concomitant]
  11. ALFUZOSIN [Concomitant]
  12. ALLOPURINOL [Concomitant]
     Dosage: 100 MG, UNK

REACTIONS (8)
  - Blood pressure increased [Unknown]
  - Blood glucose fluctuation [Not Recovered/Not Resolved]
  - Blood glucose increased [Not Recovered/Not Resolved]
  - Glycosylated haemoglobin increased [Not Recovered/Not Resolved]
  - Weight increased [Unknown]
  - Blood glucose decreased [Not Recovered/Not Resolved]
  - Drug interaction [Unknown]
  - Limb discomfort [Not Recovered/Not Resolved]
